FAERS Safety Report 8784682 (Version 1)
Quarter: 2012Q4

REPORT INFORMATION
  Report Type: Spontaneous
  Country: GB (occurrence: None)
  Receive Date: 20120831
  Receipt Date: 20120831
  Transmission Date: 20130627
  Serious: Yes (Other)
  Sender: FDA-Public Use
  Company Number: GER/UKI/12/0025506

PATIENT
  Age: 25 Year
  Sex: Male

DRUGS (1)
  1. CIPROFLOXACIN (CIPROFLOXACIN) [Suspect]
     Indication: TYPHOID FEVER

REACTIONS (8)
  - Treatment noncompliance [None]
  - Osteomyelitis [None]
  - Skin mass [None]
  - Pathogen resistance [None]
  - Device related infection [None]
  - Infected dermal cyst [None]
  - Candida test positive [None]
  - Granuloma [None]
